FAERS Safety Report 7911610-9 (Version None)
Quarter: 2011Q4

REPORT INFORMATION
  Report Type: 
  Country: None (occurrence: None)
  Receive Date: 20111114
  Receipt Date: 20111102
  Transmission Date: 20120403
  Serious: Yes (Hospitalization)
  Sender: FDA-Public Use
  Company Number: AU-JNJFOC-20111011283

PATIENT
  Sex: Male
  Weight: 83.3 kg

DRUGS (4)
  1. PREDNISOLONE [Suspect]
     Indication: PROSTATE CANCER METASTATIC
     Route: 065
     Dates: start: 20110902
  2. ZOLADEX [Concomitant]
     Indication: HORMONE THERAPY
     Route: 065
     Dates: start: 20030101
  3. ABIRATERONE ACETATE [Suspect]
     Route: 048
  4. ABIRATERONE ACETATE [Suspect]
     Indication: PROSTATE CANCER METASTATIC
     Dosage: MED KIT NUMBER: 04058
     Route: 048
     Dates: start: 20110902

REACTIONS (2)
  - PYREXIA [None]
  - BONE PAIN [None]
